FAERS Safety Report 7471565-0 (Version None)
Quarter: 2011Q2

REPORT INFORMATION
  Report Type: 
  Country: None (occurrence: None)
  Receive Date: 20110511
  Receipt Date: 20110404
  Transmission Date: 20111010
  Serious: Yes (Hospitalization, Other)
  Sender: FDA-Public Use
  Company Number: US-BAYER-201027136NA

PATIENT
  Age: 32 Year
  Sex: Female
  Weight: 65.76 kg

DRUGS (7)
  1. DIFERGAN GEL [Concomitant]
     Indication: SKIN DISORDER
     Route: 061
  2. WELLBUTRIN [Concomitant]
     Indication: DEPRESSION
     Dosage: 75 MG, UNK
     Route: 048
     Dates: start: 20060501
  3. YAZ [Suspect]
     Indication: ORAL CONTRACEPTION
     Dosage: UNK
     Route: 048
     Dates: start: 20080801, end: 20090801
  4. NSAID'S [Concomitant]
     Dosage: UNK UNK, PRN
     Route: 048
  5. YAZ [Suspect]
     Indication: ACNE
  6. XANAX [Concomitant]
     Indication: SLEEP DISORDER
     Dosage: 0.5 MG, UNK
     Route: 048
     Dates: start: 20060501
  7. PREVACID [Concomitant]
     Dosage: 30 MG, UNK
     Route: 048

REACTIONS (4)
  - DIARRHOEA [None]
  - GASTROOESOPHAGEAL REFLUX DISEASE [None]
  - CHOLELITHIASIS [None]
  - ABDOMINAL PAIN UPPER [None]
